FAERS Safety Report 16600551 (Version 2)
Quarter: 2019Q3

REPORT INFORMATION
  Report Type: Spontaneous
  Country: FR (occurrence: FR)
  Receive Date: 20190720
  Receipt Date: 20190801
  Transmission Date: 20191004
  Serious: Yes (Hospitalization, Other)
  Sender: FDA-Public Use
  Company Number: FR-AUROBINDO-AUR-APL-2019-040256

PATIENT

DRUGS (1)
  1. LAMOTRIGINE ARROW DISPERSIBLE TABLET 25MG [Suspect]
     Active Substance: LAMOTRIGINE
     Indication: JUVENILE MYOCLONIC EPILEPSY
     Dosage: 50 MILLIGRAM, ONCE A DAY
     Route: 048
     Dates: start: 20190514, end: 20190607

REACTIONS (4)
  - Conjunctivitis [Recovering/Resolving]
  - Toxic skin eruption [Recovering/Resolving]
  - Cheilitis [Recovering/Resolving]
  - Stevens-Johnson syndrome [Recovering/Resolving]

NARRATIVE: CASE EVENT DATE: 20190605
